FAERS Safety Report 5500071-5 (Version None)
Quarter: 2007Q4

REPORT INFORMATION
  Report Type: 
  Country: None (occurrence: None)
  Receive Date: 20071024
  Receipt Date: 20071009
  Transmission Date: 20080405
  Serious: Yes (Hospitalization)
  Sender: FDA-Public Use
  Company Number: 162572ISR

PATIENT
  Age: 58 Year
  Sex: Male

DRUGS (5)
  1. SIMVASTATIN [Suspect]
     Indication: HYPERCHOLESTEROLAEMIA
     Dosage: 20 MG (20 MG, 1 IN 1 D)
     Route: 048
  2. CLARITHROMYCIN [Suspect]
     Dosage: 1000 MG (500 MG, 2 IN 1 D)
  3. DIDANOSINE [Suspect]
     Indication: HIV INFECTION
     Dosage: 400 MG (200 MG, 2 IN 1 D)
     Route: 048
  4. NEVIRAPINE [Suspect]
     Indication: HIV INFECTION
     Dosage: 400 MG (200 MG, 2 IN 1 D)
     Route: 048
  5. ZIDOVUDINE [Suspect]
     Indication: HIV INFECTION
     Dosage: 500 MG (250 MG, 2 IN 1D)
     Route: 048

REACTIONS (9)
  - ANXIETY [None]
  - DISTURBANCE IN ATTENTION [None]
  - DRUG INTERACTION [None]
  - HOMICIDAL IDEATION [None]
  - MENTAL DISORDER [None]
  - PRESSURE OF SPEECH [None]
  - PSYCHIATRIC SYMPTOM [None]
  - PSYCHOMOTOR HYPERACTIVITY [None]
  - SUICIDAL IDEATION [None]
